FAERS Safety Report 22383526 (Version 3)
Quarter: 2023Q2

REPORT INFORMATION
  Report Type: Spontaneous
  Country: US (occurrence: US)
  Receive Date: 20230530
  Receipt Date: 20230628
  Transmission Date: 20230722
  Serious: No
  Sender: FDA-Public Use
  Company Number: US-TORRENT-00012682

PATIENT
  Age: 74 Year
  Sex: Male

DRUGS (1)
  1. TRAZODONE HYDROCHLORIDE [Suspect]
     Active Substance: TRAZODONE HYDROCHLORIDE
     Indication: Sleep disorder
     Dosage: 300 MG, ONE TABLET ONCE A DAY
     Route: 065
     Dates: start: 2023

REACTIONS (6)
  - Product taste abnormal [Unknown]
  - Throat irritation [Unknown]
  - Product size issue [Unknown]
  - Product use issue [Unknown]
  - Product use complaint [Unknown]
  - Product coating issue [Unknown]

NARRATIVE: CASE EVENT DATE: 20230101
